FAERS Safety Report 20502015 (Version 2)
Quarter: 2022Q1

REPORT INFORMATION
  Report Type: Spontaneous
  Country: GB (occurrence: GB)
  Receive Date: 20220222
  Receipt Date: 20220225
  Transmission Date: 20220424
  Serious: Yes (Other)
  Sender: FDA-Public Use
  Company Number: GB-MHRA-MED-202202091340399600-RCICE

PATIENT
  Age: 39 Year
  Sex: Male
  Weight: 93 kg

DRUGS (1)
  1. LINEZOLID [Suspect]
     Active Substance: LINEZOLID
     Indication: Product used for unknown indication
     Dosage: UNK

REACTIONS (1)
  - Blood creatine phosphokinase increased [Recovered/Resolved]
